FAERS Safety Report 25517941 (Version 3)
Quarter: 2025Q3

REPORT INFORMATION
  Report Type: Report from Study
  Country: CA (occurrence: CA)
  Receive Date: 20250704
  Receipt Date: 20250803
  Transmission Date: 20251021
  Serious: No
  Sender: ALEXION PHARMACEUTICALS
  Company Number: CA-AstraZeneca-CH-00899138A

PATIENT
  Age: 68 Year
  Sex: Male

DRUGS (2)
  1. ULTOMIRIS [Suspect]
     Active Substance: RAVULIZUMAB-CWVZ
     Indication: Myasthenia gravis
     Dates: start: 20250415, end: 20250415
  2. ULTOMIRIS [Suspect]
     Active Substance: RAVULIZUMAB-CWVZ
     Dates: start: 20250430, end: 20250430

REACTIONS (5)
  - Erythema [Recovering/Resolving]
  - Peripheral swelling [Recovering/Resolving]
  - Pruritus [Recovering/Resolving]
  - Burning sensation [Recovered/Resolved]
  - Lethargy [Recovered/Resolved]

NARRATIVE: CASE EVENT DATE: 20250625
